FAERS Safety Report 15963168 (Version 1)
Quarter: 2019Q1

REPORT INFORMATION
  Report Type: Report from Study
  Country: TR (occurrence: TR)
  Receive Date: 20190214
  Receipt Date: 20190214
  Transmission Date: 20190417
  Serious: Yes (Death, Other)
  Sender: FDA-Public Use
  Company Number: TR-PFIZER INC-2018131061

PATIENT
  Age: 20 Year
  Sex: Male

DRUGS (2)
  1. INOTUZUMAB OZOGAMICIN [Suspect]
     Active Substance: INOTUZUMAB OZOGAMICIN
     Dosage: 1 MG, UNK
     Dates: start: 20180309
  2. DEFIBROTIDA [Concomitant]
     Active Substance: DEFIBROTIDE (BOVINE)
     Dosage: 4 X 400

REACTIONS (5)
  - Platelet count decreased [Unknown]
  - Blood alkaline phosphatase increased [Unknown]
  - Bilirubin conjugated increased [Unknown]
  - Blood bilirubin increased [Unknown]
  - Death [Fatal]

NARRATIVE: CASE EVENT DATE: 20180328
